FAERS Safety Report 17896239 (Version 1)
Quarter: 2020Q2

REPORT INFORMATION
  Report Type: Spontaneous
  Country: CN (occurrence: CN)
  Receive Date: 20200615
  Receipt Date: 20200615
  Transmission Date: 20200714
  Serious: Yes (Other)
  Sender: FDA-Public Use
  Company Number: CN-BEH-2020118396

PATIENT
  Age: 41 Year
  Sex: Female
  Weight: 60 kg

DRUGS (1)
  1. ALBURX [Suspect]
     Active Substance: ALBUMIN HUMAN
     Indication: MALNUTRITION
     Dosage: 20 GRAM, QD
     Route: 042
     Dates: start: 20200417, end: 20200420

REACTIONS (5)
  - Drug hypersensitivity [Recovering/Resolving]
  - Heart rate decreased [Recovering/Resolving]
  - Chest discomfort [Recovering/Resolving]
  - Body temperature decreased [Recovering/Resolving]
  - Blood pressure decreased [Recovering/Resolving]

NARRATIVE: CASE EVENT DATE: 20200417
